FAERS Safety Report 10798960 (Version 1)
Quarter: 2015Q1

REPORT INFORMATION
  Report Type: Spontaneous
  Country: US (occurrence: US)
  Receive Date: 20150216
  Receipt Date: 20150216
  Transmission Date: 20150721
  Serious: No
  Sender: FDA-Public Use
  Company Number: US-ALLERGAN-1406252US

PATIENT
  Age: 75 Year
  Sex: Female

DRUGS (5)
  1. RESTASIS [Suspect]
     Active Substance: CYCLOSPORINE
     Indication: DRY EYE
     Dosage: 2 GTT, UNK
     Route: 047
     Dates: start: 20140319, end: 20140322
  2. DEPRESSION MEDICATION NOS [Concomitant]
     Indication: DEPRESSION
     Route: 048
  3. TEAR DROPS NOS [Concomitant]
     Indication: DRY EYE
  4. BAUSCH AND LOMB OINTMENT NOS [Concomitant]
     Indication: DRY EYE
  5. WARM SALT WATER GARGLE [Concomitant]
     Indication: DRY EYE

REACTIONS (3)
  - Dizziness [Recovering/Resolving]
  - Eye pain [Unknown]
  - Dry eye [Unknown]
